FAERS Safety Report 9306711 (Version 6)
Quarter: 2014Q3

REPORT INFORMATION
  Report Type: Report from Study
  Country: US (occurrence: US)
  Receive Date: 20130523
  Receipt Date: 20140930
  Transmission Date: 20150326
  Serious: No
  Sender: FDA-Public Use
  Company Number: US-ALEXION-A201300972

PATIENT

DRUGS (16)
  1. ZEMPLAR [Concomitant]
     Active Substance: PARICALCITOL
     Indication: HYPERPARATHYROIDISM
     Dosage: 2 MCG, QD
     Route: 065
     Dates: start: 2012
  2. SOLIRIS [Suspect]
     Active Substance: ECULIZUMAB
     Indication: HAEMOLYTIC URAEMIC SYNDROME
     Dosage: 900 MG, QW
     Route: 042
     Dates: start: 20130415
  3. SYNTHROID [Concomitant]
     Active Substance: LEVOTHYROXINE SODIUM
     Indication: HYPOTHYROIDISM
     Dosage: 112 MCG, QD
     Route: 065
     Dates: start: 2003
  4. IRON [Concomitant]
     Active Substance: IRON
     Dosage: UNK
     Route: 065
     Dates: start: 20130415
  5. CENTRUM [Concomitant]
     Active Substance: VITAMINS
     Indication: SUPPLEMENTATION THERAPY
     Dosage: 1 DF, QD
     Dates: start: 20130415
  6. ARANESP [Concomitant]
     Active Substance: DARBEPOETIN ALFA
     Indication: PRODUCT USED FOR UNKNOWN INDICATION
     Route: 065
  7. ZEMPLAR [Concomitant]
     Active Substance: PARICALCITOL
     Dosage: UNK, QD
     Route: 065
     Dates: start: 20130415
  8. IRON [Concomitant]
     Active Substance: IRON
     Indication: MINERAL SUPPLEMENTATION
     Dosage: 325 MG, QD
     Route: 065
  9. ULORIC [Concomitant]
     Active Substance: FEBUXOSTAT
     Dosage: UNK
     Route: 065
     Dates: start: 20130415
  10. PROCRIT [Concomitant]
     Active Substance: ERYTHROPOIETIN
     Indication: ERYTHROPOIESIS ABNORMAL
     Dosage: UNK, QW
     Route: 065
     Dates: start: 20130415
  11. SYNTHROID [Concomitant]
     Active Substance: LEVOTHYROXINE SODIUM
     Dosage: UNK, QD
     Route: 065
     Dates: start: 20130415
  12. ULORIC [Concomitant]
     Active Substance: FEBUXOSTAT
     Indication: BLOOD URIC ACID INCREASED
     Dosage: 40 MG, QD
     Dates: start: 2011
  13. VITAMIN D                          /00107901/ [Concomitant]
     Active Substance: ERGOCALCIFEROL
     Indication: VITAMIN D DEFICIENCY
     Dosage: 2000 MG, QD
     Route: 065
     Dates: start: 20130415
  14. SOLIRIS [Suspect]
     Active Substance: ECULIZUMAB
     Dosage: 1200 MG, Q2W
     Route: 042
     Dates: start: 20140521, end: 20140714
  15. AVAPRO [Concomitant]
     Active Substance: IRBESARTAN
     Dosage: 75 UNK, UNK
     Route: 065
     Dates: start: 20130415
  16. AVAPRO [Concomitant]
     Active Substance: IRBESARTAN
     Indication: HYPERTENSION
     Dosage: 75 MG, QD
     Route: 065
     Dates: start: 2011

REACTIONS (12)
  - Malaise [Recovered/Resolved]
  - Nausea [Not Recovered/Not Resolved]
  - Feeling abnormal [Recovered/Resolved]
  - Fall [Recovered/Resolved]
  - Drug ineffective [Unknown]
  - Vision blurred [Not Recovered/Not Resolved]
  - Skin abrasion [Recovered/Resolved]
  - Halo vision [Recovered/Resolved]
  - Confusional state [Recovered/Resolved]
  - Headache [Recovered/Resolved]
  - Frequent bowel movements [Recovered/Resolved]
  - Drug dose omission [Unknown]

NARRATIVE: CASE EVENT DATE: 20130415
